FAERS Safety Report 5331370-8 (Version None)
Quarter: 2007Q2

REPORT INFORMATION
  Report Type: 
  Country: None (occurrence: None)
  Receive Date: 20070522
  Receipt Date: 20070511
  Transmission Date: 20071010
  Serious: Yes (Hospitalization)
  Sender: FDA-Public Use
  Company Number: DE-SANOFI-SYNTHELABO-F04200700039

PATIENT
  Sex: Female
  Weight: 46.5 kg

DRUGS (4)
  1. CAPECITABINE [Suspect]
     Indication: COLORECTAL CANCER
     Route: 048
     Dates: start: 20070322, end: 20070510
  2. CETUXIMAB [Suspect]
     Indication: COLORECTAL CANCER
     Route: 041
     Dates: start: 20070503, end: 20070503
  3. ELOXATIN [Suspect]
     Indication: COLORECTAL CANCER
     Route: 041
     Dates: start: 20070503, end: 20070503
  4. BEVACIZUMAB [Concomitant]
     Indication: COLORECTAL CANCER
     Route: 041

REACTIONS (5)
  - DEHYDRATION [None]
  - GENERAL PHYSICAL HEALTH DETERIORATION [None]
  - HYPOTENSION [None]
  - NAUSEA [None]
  - VOMITING [None]
